FAERS Safety Report 8858965 (Version 1)
Quarter: 2012Q4

REPORT INFORMATION
  Report Type: 
  Country: IN (occurrence: IN)
  Receive Date: 20121024
  Receipt Date: 20121024
  Transmission Date: 20130627
  Serious: Yes (Death, Life-Threatening)
  Sender: FDA-Public Use
  Company Number: IN-ASTELLAS-2012JP009950

PATIENT
  Sex: Male

DRUGS (3)
  1. MICAFUNGIN [Suspect]
     Indication: SYSTEMIC CANDIDA
     Dosage: UNK
     Route: 065
  2. MICAFUNGIN [Suspect]
     Indication: CANDIDIASIS
     Dosage: 100 mg, UID/QD
     Route: 065
  3. MICAFUNGIN [Suspect]
     Indication: FUNGAL INFECTION

REACTIONS (2)
  - Multi-organ failure [Fatal]
  - Hepatic failure [Not Recovered/Not Resolved]
